FAERS Safety Report 15894330 (Version 1)
Quarter: 2019Q1

REPORT INFORMATION
  Report Type: Spontaneous
  Country: ES (occurrence: ES)
  Receive Date: 20190131
  Receipt Date: 20190131
  Transmission Date: 20190417
  Serious: Yes (Hospitalization, Other)
  Sender: FDA-Public Use
  Company Number: ES-TEVA-2019-ES-1005452

PATIENT
  Age: 74 Year
  Sex: Female

DRUGS (5)
  1. ESPIRONOLACTONA ALTER 25 MG COMPRIMIDOS RECUBIERTOS EFG [Interacting]
     Active Substance: SPIRONOLACTONE
     Indication: CARDIAC FAILURE
     Dosage: 25 MILLIGRAM DAILY;
     Route: 048
     Dates: start: 2016, end: 201707
  2. CO-DIOVAN [Interacting]
     Active Substance: HYDROCHLOROTHIAZIDE\VALSARTAN
     Indication: HYPERTENSION
     Dosage: THE PATIENT DOES NOT KNOW THE DOSE
     Route: 048
     Dates: start: 2016
  3. FUROSEMIDA (1615A) [Interacting]
     Active Substance: FUROSEMIDE
     Indication: CARDIAC FAILURE
     Dosage: 40 MILLIGRAM DAILY;
     Route: 048
     Dates: start: 2016, end: 201707
  4. IBUPROFENO (1769A) [Suspect]
     Active Substance: IBUPROFEN
     Indication: CATARRH
     Dosage: 600 MILLIGRAM DAILY;
     Route: 048
     Dates: start: 20170620, end: 20170705
  5. METFORMINA (1359A) [Concomitant]
     Active Substance: METFORMIN HYDROCHLORIDE
     Indication: TYPE 2 DIABETES MELLITUS
     Dosage: 850MG
     Route: 048

REACTIONS (4)
  - Condition aggravated [Recovered/Resolved]
  - Hyperkalaemia [Recovered/Resolved]
  - Drug interaction [Recovered/Resolved]
  - Acute kidney injury [Recovered/Resolved]

NARRATIVE: CASE EVENT DATE: 20170705
